FAERS Safety Report 23193745 (Version 1)
Quarter: 2023Q4

REPORT INFORMATION
  Report Type: Spontaneous
  Country: US (occurrence: US)
  Receive Date: 20231116
  Receipt Date: 20231116
  Transmission Date: 20240110
  Serious: No
  Sender: FDA-Public Use
  Company Number: US-SA-SAC20231108001171

PATIENT
  Sex: Female
  Weight: 61.23 kg

DRUGS (5)
  1. DUPIXENT [Suspect]
     Active Substance: DUPILUMAB
     Indication: Dermatitis atopic
     Dosage: 300 MG, Q4W
     Route: 058
  2. CORTISONE [Concomitant]
     Active Substance: CORTISONE
  3. VITAMINS NOS [Concomitant]
     Active Substance: VITAMINS
  4. CALCIUM [Concomitant]
     Active Substance: CALCIUM
  5. CARNBERRY [Concomitant]

REACTIONS (4)
  - Skin lesion [Recovering/Resolving]
  - Dermatitis atopic [Recovering/Resolving]
  - Intentional dose omission [Unknown]
  - Inappropriate schedule of product administration [Unknown]
